FAERS Safety Report 20830019 (Version 1)
Quarter: 2022Q2

REPORT INFORMATION
  Report Type: Spontaneous
  Country: US (occurrence: None)
  Receive Date: 20220514
  Receipt Date: 20220514
  Transmission Date: 20220721
  Serious: Yes (Other)
  Sender: FDA-Public Use
  Company Number: US-ROCHE-3095140

PATIENT
  Sex: Male

DRUGS (9)
  1. ESBRIET [Suspect]
     Active Substance: PIRFENIDONE
     Indication: Pulmonary fibrosis
     Route: 048
  2. BUMEX [Concomitant]
     Active Substance: BUMETANIDE
  3. FERROUS SULFATE [Concomitant]
     Active Substance: FERROUS SULFATE
  4. GABAPENTIN [Concomitant]
     Active Substance: GABAPENTIN
  5. SYNJARDY [Concomitant]
     Active Substance: EMPAGLIFLOZIN\METFORMIN HYDROCHLORIDE
  6. TADALAFIL [Concomitant]
     Active Substance: TADALAFIL
  7. TESTOSTERONE CYPIONATE [Concomitant]
     Active Substance: TESTOSTERONE CYPIONATE
  8. VERAPAMIL HCL [Concomitant]
     Active Substance: VERAPAMIL HYDROCHLORIDE
  9. XARELTO [Concomitant]
     Active Substance: RIVAROXABAN

REACTIONS (1)
  - Plasma cell myeloma [Recovered/Resolved]
